FAERS Safety Report 7258990-8 (Version None)
Quarter: 2011Q1

REPORT INFORMATION
  Report Type: 
  Country: None (occurrence: None)
  Receive Date: 20110129
  Receipt Date: 20100623
  Transmission Date: 20110831
  Serious: No
  Sender: FDA-Public Use
  Company Number: US-ABBOTT-10P-163-0653203-00

PATIENT
  Age: 60 Year
  Sex: Female

DRUGS (10)
  1. FOLIC ACID [Concomitant]
     Indication: ARTHRITIS
  2. METHOTREXATE [Concomitant]
     Indication: ARTHRITIS
  3. ATIVAN [Concomitant]
     Indication: ANXIETY
  4. ATIVAN [Concomitant]
     Indication: DEPRESSION
  5. CRESTOR [Concomitant]
     Indication: BLOOD CHOLESTEROL INCREASED
  6. HUMIRA [Suspect]
     Indication: RHEUMATOID ARTHRITIS
     Dates: start: 20080101
  7. ALENDRONATE SODIUM [Concomitant]
     Indication: OSTEOPOROSIS
  8. PLAQUENIL [Concomitant]
     Indication: ARTHRITIS
  9. ADVAIR [Concomitant]
     Indication: EMPHYSEMA
  10. CITALOPRAM [Concomitant]
     Indication: DEPRESSION

REACTIONS (1)
  - INJECTION SITE HAEMORRHAGE [None]
